FAERS Safety Report 17319472 (Version 1)
Quarter: 2020Q1

REPORT INFORMATION
  Report Type: Spontaneous
  Country: US (occurrence: US)
  Receive Date: 20200124
  Receipt Date: 20200124
  Transmission Date: 20200409
  Serious: No
  Sender: FDA-Public Use
  Company Number: US-JNJFOC-20200109182

PATIENT
  Sex: Female
  Weight: 65.83 kg

DRUGS (1)
  1. TYLENOL 8 HR ARTHRITIS PAIN [Suspect]
     Active Substance: ACETAMINOPHEN
     Indication: NECK PAIN
     Route: 048
     Dates: end: 20191230

REACTIONS (3)
  - Muscle tightness [Recovering/Resolving]
  - Pain [Recovering/Resolving]
  - Incorrect dose administered [Unknown]
